FAERS Safety Report 4662381-3 (Version None)
Quarter: 2005Q2

REPORT INFORMATION
  Report Type: 
  Country: None (occurrence: None)
  Receive Date: 20050516
  Receipt Date: 20050418
  Transmission Date: 20051028
  Serious: Yes (Other)
  Sender: FDA-Public Use
  Company Number: TW-JNJFOC-20050406971

PATIENT
  Age: 56 Year
  Sex: Male

DRUGS (9)
  1. IBUPROFEN [Suspect]
  2. IBUPROFEN [Suspect]
     Dosage: USED MOST OF THE TIME
  3. NAPROXEN [Suspect]
  4. NAPROXEN [Suspect]
  5. ENALAPRIL MALEATE [Concomitant]
  6. PROPRANOLOL [Concomitant]
  7. PROBENECID [Concomitant]
  8. IMIPRAMINE [Concomitant]
     Dosage: 25 MG/DAY; 75 MG HS
  9. FLUOXETINE [Concomitant]

REACTIONS (15)
  - AGGRESSION [None]
  - AGITATION [None]
  - ANOREXIA [None]
  - CONDITION AGGRAVATED [None]
  - DELUSION [None]
  - DEPRESSION [None]
  - DISTURBANCE IN ATTENTION [None]
  - FATIGUE [None]
  - IMPAIRED WORK ABILITY [None]
  - INSOMNIA [None]
  - LOSS OF LIBIDO [None]
  - NERVOUSNESS [None]
  - PAIN IN EXTREMITY [None]
  - PARANOIA [None]
  - SUICIDAL IDEATION [None]
